FAERS Safety Report 18866941 (Version 1)
Quarter: 2021Q1

REPORT INFORMATION
  Report Type: Spontaneous
  Country: FR (occurrence: FR)
  Receive Date: 20210208
  Receipt Date: 20210208
  Transmission Date: 20210420
  Serious: Yes (Hospitalization, Other)
  Sender: FDA-Public Use
  Company Number: FR-SA-2021SA034983

PATIENT
  Age: 34 Year
  Sex: Male
  Weight: 75 kg

DRUGS (1)
  1. RIFADINE [Suspect]
     Active Substance: RIFAMPIN
     Indication: CHOLESTASIS
     Dosage: UNK
     Route: 048
     Dates: start: 202002, end: 20200407

REACTIONS (3)
  - Pancreatitis [Recovered/Resolved]
  - Transaminases increased [Recovered/Resolved]
  - Cholestasis [Recovered/Resolved]

NARRATIVE: CASE EVENT DATE: 20200407
